FAERS Safety Report 7930812-9 (Version None)
Quarter: 2011Q4

REPORT INFORMATION
  Report Type: 
  Country: None (occurrence: None)
  Receive Date: 20111121
  Receipt Date: 20111115
  Transmission Date: 20120403
  Serious: Yes (Other)
  Sender: FDA-Public Use
  Company Number: JP-GLAXOSMITHKLINE-B0763458A

PATIENT
  Sex: Male

DRUGS (2)
  1. FLUTICASONE PROPIONATE/SALMETEROL [Suspect]
     Route: 055
     Dates: start: 20111101
  2. FLUTICASONE PROPIONATE/SALMETEROL [Suspect]
     Indication: PRODUCT USED FOR UNKNOWN INDICATION
     Route: 055
     Dates: end: 20111101

REACTIONS (2)
  - ASTHMA [None]
  - OVERDOSE [None]
